FAERS Safety Report 17926881 (Version 3)
Quarter: 2021Q1

REPORT INFORMATION
  Report Type: Spontaneous
  Country: NL (occurrence: NL)
  Receive Date: 20200623
  Receipt Date: 20210125
  Transmission Date: 20210419
  Serious: Yes (Other)
  Sender: FDA-Public Use
  Company Number: NL-ROCHE-2628382

PATIENT
  Sex: Male

DRUGS (5)
  1. XOLAIR [Suspect]
     Active Substance: OMALIZUMAB
     Route: 065
  2. XOLAIR [Suspect]
     Active Substance: OMALIZUMAB
     Indication: CHRONIC SPONTANEOUS URTICARIA
     Route: 065
  3. XOLAIR [Suspect]
     Active Substance: OMALIZUMAB
     Dosage: (6 TO 8 WEEKS INTERVAL)
     Route: 065
  4. XOLAIR [Suspect]
     Active Substance: OMALIZUMAB
     Route: 065
  5. XOLAIR [Suspect]
     Active Substance: OMALIZUMAB
     Route: 065

REACTIONS (4)
  - Paraesthesia [Recovering/Resolving]
  - Urticaria [Unknown]
  - Inappropriate schedule of product administration [Unknown]
  - Cerebral infarction [Unknown]

NARRATIVE: CASE EVENT DATE: 202005
